FAERS Safety Report 15472322 (Version 1)
Quarter: 2018Q4

REPORT INFORMATION
  Report Type: Spontaneous
  Country: FR (occurrence: FR)
  Receive Date: 20181008
  Receipt Date: 20181008
  Transmission Date: 20190205
  Serious: Yes (Hospitalization)
  Sender: FDA-Public Use
  Company Number: FR-B.I. PHARMACEUTICALS,INC./RIDGEFIELD-2018-12-003282

PATIENT
  Age: 55 Year
  Sex: Male

DRUGS (3)
  1. CATAPRESSAN [Suspect]
     Active Substance: CLONIDINE
     Indication: HYPERTENSION
     Dosage: 0.15 MG/ML; SOLUTION INJECTABLE
     Route: 042
     Dates: start: 20180825, end: 20180828
  2. PROPOFOL LIPURO [Suspect]
     Active Substance: PROPOFOL
     Indication: SEDATION
     Dosage: EN FONCTION DES BESOINS
     Route: 042
     Dates: start: 20180821, end: 20180828
  3. TAZOCILLINE [Suspect]
     Active Substance: PIPERACILLIN SODIUM\TAZOBACTAM SODIUM
     Indication: LUNG DISORDER
     Route: 042
     Dates: start: 20180823, end: 20180829

REACTIONS (3)
  - Rash maculo-papular [Recovering/Resolving]
  - Cell death [Recovering/Resolving]
  - Cholestasis [Recovering/Resolving]

NARRATIVE: CASE EVENT DATE: 20180828
